FAERS Safety Report 17318867 (Version 1)
Quarter: 2020Q1

REPORT INFORMATION
  Report Type: Spontaneous
  Country: AU (occurrence: AU)
  Receive Date: 20200124
  Receipt Date: 20200124
  Transmission Date: 20200409
  Serious: Yes (Hospitalization)
  Sender: FDA-Public Use
  Company Number: AU-MERZ PHARMACEUTICALS GMBH-19MRZ-00310

PATIENT
  Sex: Female

DRUGS (7)
  1. ASCLERA [Suspect]
     Active Substance: POLIDOCANOL
     Indication: VARICOSE VEIN
     Dosage: 8 X 1.5ML TO LEFT LEG, 10 X 1.5ML TO RIGHT LEG
     Route: 042
     Dates: start: 20190501, end: 20190502
  2. FLECAINIDE [Concomitant]
     Active Substance: FLECAINIDE
  3. PROGYNOVA [Concomitant]
     Active Substance: ESTRADIOL VALERATE
  4. ZYRTEC [Concomitant]
     Active Substance: CETIRIZINE HYDROCHLORIDE
  5. PLAVIX [Concomitant]
     Active Substance: CLOPIDOGREL BISULFATE
  6. NEXIUM [Concomitant]
     Active Substance: ESOMEPRAZOLE MAGNESIUM
  7. ATACAND [Concomitant]
     Active Substance: CANDESARTAN CILEXETIL

REACTIONS (1)
  - Ulcer [Unknown]
